FAERS Safety Report 17691766 (Version 2)
Quarter: 2020Q2

REPORT INFORMATION
  Report Type: Spontaneous
  Country: US (occurrence: US)
  Receive Date: 20200422
  Receipt Date: 20200611
  Transmission Date: 20200714
  Serious: No
  Sender: FDA-Public Use
  Company Number: US-TOLMAR, INC.-20US020985

PATIENT
  Sex: Female

DRUGS (1)
  1. ELIGARD [Suspect]
     Active Substance: LEUPROLIDE ACETATE
     Indication: BREAST CANCER
     Dosage: 7.5 MG
     Route: 065
     Dates: start: 2015

REACTIONS (4)
  - Syringe issue [None]
  - Intercepted product preparation error [None]
  - Device leakage [None]
  - Off label use [Unknown]
